FAERS Safety Report 12253558 (Version 1)
Quarter: 2016Q2

REPORT INFORMATION
  Report Type: Spontaneous
  Country: JP (occurrence: JP)
  Receive Date: 20160411
  Receipt Date: 20160411
  Transmission Date: 20160815
  Serious: Yes (Death, Other)
  Sender: FDA-Public Use
  Company Number: JP-ASTELLAS-2016JP005540

PATIENT
  Age: 7 Decade
  Sex: Male

DRUGS (1)
  1. FUNGUARD [Suspect]
     Active Substance: MICAFUNGIN SODIUM
     Indication: BRONCHOPULMONARY ASPERGILLOSIS
     Route: 041

REACTIONS (1)
  - Laryngeal cancer [Fatal]
